FAERS Safety Report 4588081-6 (Version None)
Quarter: 2005Q1

REPORT INFORMATION
  Report Type: 
  Country: None (occurrence: None)
  Receive Date: 20050216
  Receipt Date: 20050202
  Transmission Date: 20050727
  Serious: Yes (Death)
  Sender: FDA-Public Use
  Company Number: CA_050207717

PATIENT
  Age: 16 Year
  Sex: Male

DRUGS (2)
  1. OLANZAPINE [Suspect]
     Route: 048
     Dates: start: 20030101
  2. ACCUTANE          (ISOTRETINOIN MEPHA) [Concomitant]

REACTIONS (1)
  - COMPLETED SUICIDE [None]
